FAERS Safety Report 8209227-4 (Version None)
Quarter: 2012Q1

REPORT INFORMATION
  Report Type: 
  Country: None (occurrence: None)
  Receive Date: 20120314
  Receipt Date: 20120306
  Transmission Date: 20120608
  Serious: Yes (Other)
  Sender: FDA-Public Use
  Company Number: PHHY2012ES019534

PATIENT
  Age: 43 Year
  Sex: Female

DRUGS (3)
  1. FENTANYL [Concomitant]
     Indication: PROCEDURAL PAIN
  2. ACETAMINOPHEN [Concomitant]
     Indication: PROCEDURAL PAIN
  3. AMITRIPTYLINE HCL [Suspect]
     Indication: PROCEDURAL PAIN
     Dosage: 75 MG, UNK
     Route: 048

REACTIONS (2)
  - HAEMORRHAGE [None]
  - PLATELET DISORDER [None]
